FAERS Safety Report 9813783 (Version 1)
Quarter: 2014Q1

REPORT INFORMATION
  Report Type: Spontaneous
  Country: US (occurrence: None)
  Receive Date: 20140109
  Receipt Date: 20140109
  Transmission Date: 20141002
  Serious: Yes (Hospitalization)
  Sender: FDA-Public Use
  Company Number: None

PATIENT
  Age: 66 Year
  Sex: Male
  Weight: 81.65 kg

DRUGS (12)
  1. FOLFIRINOX [Suspect]
     Indication: PANCREATIC CARCINOMA
  2. PF-04136309 [Suspect]
     Indication: PANCREATIC CARCINOMA
     Route: 048
  3. TYLENOL [Concomitant]
  4. DOZOLAMIDE [Concomitant]
  5. OMEPRAZOLE [Concomitant]
  6. TIMOLOL [Concomitant]
  7. TRAVATAN [Concomitant]
  8. HYDROCODONE/APAP [Concomitant]
  9. NEUPOGEN [Concomitant]
  10. EMEND [Concomitant]
  11. OXYCODONE [Concomitant]
  12. FOLFIRINOX [Concomitant]

REACTIONS (4)
  - Dyspnoea [None]
  - Leukocytosis [None]
  - Cardiac failure [None]
  - Localised oedema [None]
